FAERS Safety Report 14728217 (Version 1)
Quarter: 2018Q2

REPORT INFORMATION
  Report Type: Report from Study
  Country: US (occurrence: US)
  Receive Date: 20180406
  Receipt Date: 20180406
  Transmission Date: 20180711
  Serious: Yes (Hospitalization)
  Sender: FDA-Public Use
  Company Number: US-INDIVIOR LIMITED-INDV-110066-2018

PATIENT
  Sex: Male

DRUGS (3)
  1. BUPRENORPHINE/NALOXONE BRAND UNSPECIFIED [Suspect]
     Active Substance: BUPRENORPHINE\NALOXONE
     Indication: DRUG DEPENDENCE
     Dosage: UNK, TWICE DAILY
     Route: 060
  2. SUBOXONE [Suspect]
     Active Substance: BUPRENORPHINE HYDROCHLORIDE\NALOXONE HYDROCHLORIDE
     Indication: DRUG DEPENDENCE
     Dosage: UNK
     Route: 060
  3. SUBOXONE [Suspect]
     Active Substance: BUPRENORPHINE HYDROCHLORIDE\NALOXONE HYDROCHLORIDE
     Dosage: UNK, TWO TIMES A DAY ONE IN THE AM AND ONE IN THE PM
     Route: 060
     Dates: end: 201803

REACTIONS (14)
  - Incoherent [Unknown]
  - Lethargy [Unknown]
  - Product use issue [Recovered/Resolved]
  - Substance abuse [Recovered/Resolved]
  - Diarrhoea [Unknown]
  - Adverse event [Unknown]
  - Vomiting [Unknown]
  - Drug dependence [Unknown]
  - Therapy cessation [Recovered/Resolved]
  - Gastrointestinal perforation [Unknown]
  - Weight decreased [Unknown]
  - Feeling abnormal [Unknown]
  - Nausea [Unknown]
  - Drug withdrawal syndrome [Unknown]

NARRATIVE: CASE EVENT DATE: 201711
